FAERS Safety Report 16310790 (Version 3)
Quarter: 2021Q1

REPORT INFORMATION
  Report Type: Spontaneous
  Country: US (occurrence: US)
  Receive Date: 20190514
  Receipt Date: 20210125
  Transmission Date: 20210419
  Serious: No
  Sender: FDA-Public Use
  Company Number: US-PFIZER INC-2019200838

PATIENT
  Age: 67 Year
  Sex: Female

DRUGS (3)
  1. XELJANZ [Suspect]
     Active Substance: TOFACITINIB CITRATE
     Indication: RHEUMATOID ARTHRITIS
     Dosage: 5 MG, 2X/DAY
     Route: 048
     Dates: start: 2016
  2. CORTISONE [HYDROCORTISONE] [Concomitant]
     Dosage: UNK
     Dates: start: 20201104
  3. XELJANZ [Suspect]
     Active Substance: TOFACITINIB CITRATE
     Dosage: 5 MG, 2X/DAY, [ONE TAB TWICE DAILY]
     Dates: start: 20180405

REACTIONS (4)
  - Pruritus [Unknown]
  - Psoriasis [Unknown]
  - Rash papular [Unknown]
  - Hepatic enzyme increased [Unknown]
